FAERS Safety Report 7237512-1 (Version None)
Quarter: 2011Q1

REPORT INFORMATION
  Report Type: 
  Country: None (occurrence: None)
  Receive Date: 20110121
  Receipt Date: 20110118
  Transmission Date: 20110831
  Serious: Yes (Death, Hospitalization, Other)
  Sender: FDA-Public Use
  Company Number: NO-PFIZER INC-2010133155

PATIENT
  Sex: Male

DRUGS (3)
  1. SUTENT [Suspect]
     Indication: RENAL CANCER METASTATIC
     Dosage: 50 MG, 1X/DAY
     Dates: start: 20100920, end: 20101018
  2. SOMAC [Concomitant]
     Indication: PROPHYLAXIS AGAINST GASTROINTESTINAL ULCER
     Dosage: 40 MG, 1X/DAY
     Dates: start: 20100701
  3. MEDROL [Concomitant]
     Indication: INTRACRANIAL PRESSURE INCREASED
     Dosage: 8 MG, 3X/DAY
     Dates: start: 20100701

REACTIONS (8)
  - HYPOTONIA [None]
  - BLOOD LACTATE DEHYDROGENASE INCREASED [None]
  - ECCHYMOSIS [None]
  - DIARRHOEA [None]
  - SEPSIS [None]
  - DEHYDRATION [None]
  - MOUTH ULCERATION [None]
  - CONSTIPATION [None]
